FAERS Safety Report 9585818 (Version 1)
Quarter: 2013Q4

REPORT INFORMATION
  Report Type: Spontaneous
  Country: GB (occurrence: None)
  Receive Date: 20131001
  Receipt Date: 20131001
  Transmission Date: 20140711
  Serious: Yes (Other)
  Sender: FDA-Public Use
  Company Number: AUR-APL-2012-03993

PATIENT
  Age: 58 Year
  Sex: Male
  Weight: 131 kg

DRUGS (5)
  1. PIOGLITAZONE ( PIOGLITAZONE) [Suspect]
     Indication: PRODUCT USED FOR UNKNOWN INDICATION
     Dates: start: 201004
  2. METFORMIN (METFORMIN) [Concomitant]
  3. OMEPRAZOLE ( OMEPRAZOLE) [Concomitant]
  4. RAMIPRIL ( RAMIPRIL) [Concomitant]
  5. SIMVASTATIN ( SIMVASTATIN) [Concomitant]

REACTIONS (1)
  - Bladder transitional cell carcinoma stage I [None]
